FAERS Safety Report 7081505-4 (Version None)
Quarter: 2010Q4

REPORT INFORMATION
  Report Type: 
  Country: None (occurrence: None)
  Receive Date: 20101102
  Receipt Date: 20101102
  Transmission Date: 20110411
  Serious: No
  Sender: FDA-Public Use
  Company Number: None

PATIENT
  Age: 39 Year
  Sex: Female
  Weight: 68 kg

DRUGS (1)
  1. CLINDAMYCIN [Suspect]
     Indication: COLITIS
     Dosage: 300 MG QID PO
     Route: 048
     Dates: start: 20100721, end: 20100804

REACTIONS (4)
  - COLITIS [None]
  - DIARRHOEA [None]
  - NAUSEA [None]
  - VOMITING [None]
